FAERS Safety Report 10029173 (Version 2)
Quarter: 2014Q1

REPORT INFORMATION
  Report Type: Spontaneous
  Country: US (occurrence: US)
  Receive Date: 20140321
  Receipt Date: 20140321
  Transmission Date: 20141002
  Serious: Yes (Death, Life-Threatening, Hospitalization)
  Sender: FDA-Public Use
  Company Number: US-US-EMD SERONO, INC.-230536M09USA

PATIENT
  Age: 43 Year
  Sex: Female

DRUGS (2)
  1. REBIF [Suspect]
     Indication: MULTIPLE SCLEROSIS
  2. DIAZEPAM [Suspect]
     Indication: CONVULSION
     Route: 065
     Dates: start: 20091112

REACTIONS (6)
  - Multiple sclerosis [Fatal]
  - Respiratory arrest [Unknown]
  - Sepsis [Unknown]
  - Convulsion [Recovered/Resolved]
  - Urinary tract infection [Unknown]
  - Dehydration [Unknown]
